FAERS Safety Report 6929395-1 (Version None)
Quarter: 2010Q3

REPORT INFORMATION
  Report Type: 
  Country: None (occurrence: None)
  Receive Date: 20100818
  Receipt Date: 20100810
  Transmission Date: 20110219
  Serious: Yes (Hospitalization)
  Sender: FDA-Public Use
  Company Number: US-BIOGENIDEC-2010BI027704

PATIENT
  Age: 50 Year
  Sex: Female
  Weight: 54 kg

DRUGS (3)
  1. TYSABRI [Suspect]
     Indication: MULTIPLE SCLEROSIS
     Route: 042
     Dates: start: 20040101, end: 20050201
  2. TYSABRI [Suspect]
     Route: 042
     Dates: start: 20060701
  3. NITROFURANTOIN [Concomitant]
     Indication: PROPHYLAXIS

REACTIONS (4)
  - CYSTITIS [None]
  - FUNGAL INFECTION [None]
  - NEPHROLITHIASIS [None]
  - URINARY RETENTION [None]
